FAERS Safety Report 26042365 (Version 2)
Quarter: 2025Q4

REPORT INFORMATION
  Report Type: Spontaneous
  Country: BR (occurrence: BR)
  Receive Date: 20251113
  Receipt Date: 20251113
  Transmission Date: 20260117
  Serious: Yes (Hospitalization, Other)
  Sender: LUNDBECK
  Company Number: BR-SA-2025SA324538

PATIENT
  Age: 3 Year
  Sex: Male

DRUGS (66)
  1. SABRIL [Suspect]
     Active Substance: VIGABATRIN
     Indication: Epilepsy
     Dosage: 750 MG, Q12H
  2. SABRIL [Suspect]
     Active Substance: VIGABATRIN
     Dosage: 1 DF, Q12H
  3. SABRIL [Suspect]
     Active Substance: VIGABATRIN
     Dosage: 0.5 DF, Q12H
     Dates: start: 20230706
  4. OXCARBAZEPINE [Concomitant]
     Active Substance: OXCARBAZEPINE
     Indication: Product used for unknown indication
     Dosage: 3.5 ML, Q12H
     Dates: start: 20230706
  5. CEFAZOLIN SODIUM [Concomitant]
     Active Substance: CEFAZOLIN SODIUM
     Indication: Product used for unknown indication
     Dosage: UNK
  6. CEFAZOLIN SODIUM [Concomitant]
     Active Substance: CEFAZOLIN SODIUM
     Dosage: 1 G
     Dates: start: 20231007
  7. AMOXICILLIN [Concomitant]
     Active Substance: AMOXICILLIN
     Indication: Product used for unknown indication
     Dosage: UNK
  8. CECLOR [Concomitant]
     Active Substance: CEFACLOR
     Indication: Product used for unknown indication
     Dosage: 375 MG
  9. CECLOR [Concomitant]
     Active Substance: CEFACLOR
     Dosage: UNK
  10. SODIUM CHLORIDE [Concomitant]
     Active Substance: SODIUM CHLORIDE
     Indication: Product used for unknown indication
     Dosage: 500 MG
  11. SODIUM CHLORIDE [Concomitant]
     Active Substance: SODIUM CHLORIDE
     Dosage: UNK
     Dates: start: 20231005
  12. TYLENOL [Concomitant]
     Active Substance: ACETAMINOPHEN
     Indication: Product used for unknown indication
     Dosage: 200 MG
  13. AZITHROMYCIN [Concomitant]
     Active Substance: AZITHROMYCIN
     Indication: Product used for unknown indication
     Dosage: 1500 MG
  14. AZITHROMYCIN [Concomitant]
     Active Substance: AZITHROMYCIN
     Dosage: UNK
  15. DOMPERIDONE [Concomitant]
     Active Substance: DOMPERIDONE
     Indication: Product used for unknown indication
     Dosage: 1 MG
     Dates: start: 20231011
  16. DOMPERIDONE [Concomitant]
     Active Substance: DOMPERIDONE
     Dosage: 1 MG
     Route: 047
     Dates: start: 20231010, end: 20231011
  17. DIETARY SUPPLEMENT [Concomitant]
     Active Substance: DIETARY SUPPLEMENT
     Indication: Product used for unknown indication
     Dosage: 150 ML, Q4H
  18. DIETARY SUPPLEMENT [Concomitant]
     Active Substance: DIETARY SUPPLEMENT
     Dosage: 15 ML, Q3H
     Route: 040
     Dates: start: 20231011, end: 20231011
  19. DIETARY SUPPLEMENT [Concomitant]
     Active Substance: DIETARY SUPPLEMENT
     Dosage: 25 ML, Q3H
     Dates: start: 20231012, end: 20231012
  20. DIETARY SUPPLEMENT [Concomitant]
     Active Substance: DIETARY SUPPLEMENT
     Dosage: 50 ML, Q3H
     Dates: start: 20231013, end: 20231013
  21. MOTRIN [Concomitant]
     Active Substance: IBUPROFEN
     Indication: Pain
     Dosage: 400 MG
  22. MOTRIN [Concomitant]
     Active Substance: IBUPROFEN
     Dates: start: 20230716
  23. AZITHROMYCIN [Concomitant]
     Active Substance: AZITHROMYCIN
     Indication: Product used for unknown indication
     Dosage: 25 MG, Q12H
     Route: 040
     Dates: start: 20231006
  24. AZITHROMYCIN [Concomitant]
     Active Substance: AZITHROMYCIN
     Dosage: 1500 MG  DOSE EVERY
  25. RIVOTRIL [Concomitant]
     Active Substance: CLONAZEPAM
     Indication: Product used for unknown indication
     Dosage: UNK, TID
     Dates: start: 20231009
  26. RIVOTRIL [Concomitant]
     Active Substance: CLONAZEPAM
     Dosage: 2.4 MG/ML
     Route: 040
     Dates: start: 20231006, end: 202310
  27. RIVOTRIL [Concomitant]
     Active Substance: CLONAZEPAM
     Dosage: UNK, TID (EVERY 8 HOURS IF NEEDED)
     Dates: start: 20231011, end: 202310
  28. RIVOTRIL [Concomitant]
     Active Substance: CLONAZEPAM
     Dosage: 2 DROP, TID
     Dates: start: 20231009, end: 202310
  29. RIVOTRIL [Concomitant]
     Active Substance: CLONAZEPAM
     Dosage: 2.5 MG/ML, Q12H
     Dates: start: 20231010, end: 202310
  30. RIVOTRIL [Concomitant]
     Active Substance: CLONAZEPAM
     Dosage: 2.5 MG/ML
     Dates: start: 20231012
  31. BROMOPRIDE [Concomitant]
     Active Substance: BROMOPRIDE
     Indication: Product used for unknown indication
     Dosage: 3 MG, TID
     Dates: start: 20231011
  32. PANTOPRAZOLE [Concomitant]
     Active Substance: PANTOPRAZOLE
     Indication: Product used for unknown indication
     Dosage: UNK UNK, Q12H
     Dates: start: 20230706
  33. ACETAMINOPHEN [Concomitant]
     Active Substance: ACETAMINOPHEN
     Indication: Product used for unknown indication
     Dosage: UNK
     Dates: start: 20231012
  34. MORPHINE SULFATE [Concomitant]
     Active Substance: MORPHINE SULFATE
     Indication: Product used for unknown indication
     Dosage: 1 MG/ML, Q2H
     Route: 040
     Dates: start: 20231006
  35. FENITAL [PHENYTOIN] [Concomitant]
     Indication: Product used for unknown indication
     Dosage: UNK
  36. FENITAL [PHENYTOIN] [Concomitant]
     Dosage: 25 MG, Q12H
     Route: 040
     Dates: start: 20231006
  37. HIDAZOL [Concomitant]
     Indication: Product used for unknown indication
     Dosage: UNK
     Dates: start: 20231007
  38. FENOCRIS [Concomitant]
     Indication: Product used for unknown indication
     Dosage: 20 DROP, Q12H
     Dates: start: 20231006
  39. FENOCRIS [Concomitant]
     Dosage: UNK
     Route: 040
     Dates: start: 20231005, end: 20231005
  40. POTASSIUM CHLORIDE [Concomitant]
     Active Substance: POTASSIUM CHLORIDE
     Indication: Product used for unknown indication
     Dosage: UNK
     Dates: start: 20230705
  41. POTASSIUM CHLORIDE [Concomitant]
     Active Substance: POTASSIUM CHLORIDE
     Dosage: 2.5 MG
     Dates: start: 20231012
  42. DIMETHICONE [Suspect]
     Active Substance: DIMETHICONE
     Indication: Product used for unknown indication
     Dosage: 10 DROP, TID
     Dates: start: 20231005
  43. SODIUM CHLORIDE [Concomitant]
     Active Substance: SODIUM CHLORIDE
     Indication: Product used for unknown indication
     Dosage: UNK
  44. SODIUM CHLORIDE [Concomitant]
     Active Substance: SODIUM CHLORIDE
     Dosage: UNK
     Dates: start: 20231005
  45. SIMETHICONE (DIMETHICONE) [Concomitant]
     Active Substance: DIMETHICONE
     Indication: Product used for unknown indication
     Dosage: UNK
  46. PANTASUN [Concomitant]
     Indication: Product used for unknown indication
     Dosage: 15 MG, QD
     Route: 040
  47. NOVOXIL [AMOXICILLIN TRIHYDRATE] [Concomitant]
     Indication: Product used for unknown indication
  48. DOLO MOFF [Concomitant]
     Indication: Product used for unknown indication
     Dosage: 1 MG/ML
     Route: 040
     Dates: start: 20231008
  49. MOTILIUM [Concomitant]
     Active Substance: DOMPERIDONE
     Indication: Product used for unknown indication
     Dosage: 1 MG  DOSE EVERY
     Route: 047
     Dates: start: 20231010
  50. MOTILIUM [Concomitant]
     Active Substance: DOMPERIDONE
     Dosage: 1 MG  DOSE EVERY
     Dates: start: 20231011
  51. SUCRALFATE [Concomitant]
     Active Substance: SUCRALFATE
     Indication: Product used for unknown indication
     Dosage: UNK
  52. HIDANTAL [PHENYTOIN] [Concomitant]
     Indication: Product used for unknown indication
     Dosage: 25 MG 1 DOSE EVERY 12 HOUR
     Route: 040
     Dates: start: 20231006
  53. METRONIDAZOLE [Concomitant]
     Active Substance: METRONIDAZOLE
     Indication: Product used for unknown indication
     Dosage: 16.5 ML
     Dates: start: 20231005
  54. CEFAZOLIN [Concomitant]
     Active Substance: CEFAZOLIN
     Indication: Product used for unknown indication
     Dosage: UNK
     Route: 040
     Dates: start: 20231005
  55. TRILEPTAL [Concomitant]
     Active Substance: OXCARBAZEPINE
     Indication: Product used for unknown indication
     Dosage: 3.5 ML 1 DOSE EVERY 12 HOUR
     Dates: start: 20230706
  56. IBUPROFEN [Concomitant]
     Active Substance: IBUPROFEN
     Indication: Pain
     Dosage: UNK
     Dates: start: 20230716
  57. DIPYRONE [Concomitant]
     Active Substance: DIPYRONE
     Indication: Pain
     Dosage: 1 DF, QID
     Route: 040
     Dates: start: 20231006
  58. DIPYRONE [Concomitant]
     Active Substance: DIPYRONE
     Indication: Pyrexia
  59. ONDANSETRON [Concomitant]
     Active Substance: ONDANSETRON
     Indication: Vomiting
     Dosage: UNK
     Dates: start: 20231006
  60. ONDIF [Concomitant]
     Indication: Diarrhoea
     Dosage: UNK
     Dates: start: 20230715
  61. ONDIF [Concomitant]
     Indication: Vomiting
     Dates: start: 20231006
  62. LEVETIRACETAM [Concomitant]
     Active Substance: LEVETIRACETAM
     Indication: Product used for unknown indication
     Dosage: UNK
  63. DIGESAN [BROMOPRIDE] [Concomitant]
     Indication: Product used for unknown indication
     Dosage: 3 MG 1 DOSE EVERY 8 HOUR
     Dates: start: 20231011
  64. CANNABIDIOL [Concomitant]
     Active Substance: CANNABIDIOL
     Indication: Product used for unknown indication
     Dosage: UNK
  65. CLORETO DE POTASSIO [Concomitant]
     Indication: Product used for unknown indication
     Dates: start: 20230705
  66. FLAGYL [Concomitant]
     Active Substance: METRONIDAZOLE\METRONIDAZOLE HYDROCHLORIDE
     Indication: Product used for unknown indication
     Dosage: 16.5 ML  DOSE EVERY
     Dates: start: 20231005

REACTIONS (51)
  - Disease complication [Unknown]
  - Decreased appetite [Recovered/Resolved]
  - Somnolence [Recovered/Resolved with Sequelae]
  - Vomiting [Recovered/Resolved with Sequelae]
  - Fatigue [Recovered/Resolved with Sequelae]
  - Irritability [Recovered/Resolved with Sequelae]
  - Colitis [Unknown]
  - Neuropathy peripheral [Unknown]
  - Seizure [Unknown]
  - Depressed level of consciousness [Unknown]
  - Visual impairment [Unknown]
  - Gastrooesophageal reflux disease [Unknown]
  - Poor feeding infant [Unknown]
  - General physical health deterioration [Unknown]
  - Muscle spasms [Unknown]
  - Dysphagia [Unknown]
  - Abdominal discomfort [Unknown]
  - Gastrointestinal disorder [Unknown]
  - Speech disorder [Unknown]
  - Nervous system disorder [Unknown]
  - Dyspepsia [Unknown]
  - Laryngeal disorder [Unknown]
  - Emotional distress [Unknown]
  - Inguinal hernia [Unknown]
  - Mastication disorder [Unknown]
  - Transfusion [Unknown]
  - Oesophagogastric fundoplasty [Unknown]
  - Diarrhoea [Unknown]
  - Cough [Unknown]
  - Gastric residual increased [Unknown]
  - Blood creatinine decreased [Unknown]
  - Tachycardia [Unknown]
  - C-reactive protein increased [Unknown]
  - Malnutrition [Unknown]
  - Gait inability [Unknown]
  - Weight increased [Unknown]
  - Glycosuria [Unknown]
  - Agitation [Unknown]
  - Wound [Unknown]
  - Blood alkaline phosphatase increased [Unknown]
  - Urine ketone body present [Unknown]
  - Blood calcium decreased [Unknown]
  - Developmental delay [Unknown]
  - Heart rate decreased [Unknown]
  - Monocyte count increased [Unknown]
  - Eosinophil percentage increased [Unknown]
  - Gamma-glutamyltransferase increased [Unknown]
  - Walking disability [Unknown]
  - Blood magnesium increased [Unknown]
  - Proteinuria [Unknown]
  - Blood creatine increased [Unknown]

NARRATIVE: CASE EVENT DATE: 20230703
